FAERS Safety Report 4377821-7 (Version None)
Quarter: 2004Q2

REPORT INFORMATION
  Report Type: 
  Country: None (occurrence: None)
  Receive Date: 20040609
  Receipt Date: 20040527
  Transmission Date: 20050107
  Serious: Yes (Death, Hospitalization, Other)
  Sender: FDA-Public Use
  Company Number: 2004029246

PATIENT
  Age: 83 Year
  Sex: Female

DRUGS (8)
  1. ATORVASTATIN (ATORVASTATIN) [Suspect]
     Indication: CEREBROVASCULAR ACCIDENT
     Dosage: 5 MG (5 MG, 1 IN 1 D), ORAL
     Route: 048
     Dates: start: 20040223, end: 20040301
  2. ATORVASTATIN (ATORVASTATIN) [Suspect]
     Indication: MYOCARDIAL ISCHAEMIA
     Dosage: 5 MG (5 MG, 1 IN 1 D), ORAL
     Route: 048
     Dates: start: 20040223, end: 20040301
  3. ATENOLOL [Suspect]
     Indication: HYPERTENSION
     Dosage: 50 MG (1 IN 1 D), ORAL
     Route: 048
     Dates: end: 20040226
  4. METFORMIN HCL [Concomitant]
  5. SIMVASTATIN [Concomitant]
  6. RAMIPRIL [Concomitant]
  7. FELODIPINE [Concomitant]
  8. NITROGLYCERIN [Concomitant]

REACTIONS (18)
  - AGITATION [None]
  - BLOOD BICARBONATE DECREASED [None]
  - BLOOD CHLORIDE DECREASED [None]
  - BLOOD GLUCOSE INCREASED [None]
  - BLOOD POTASSIUM INCREASED [None]
  - BRADYKINESIA [None]
  - CONFUSIONAL STATE [None]
  - DRUG INEFFECTIVE [None]
  - LACUNAR INFARCTION [None]
  - LYMPHOCYTE COUNT DECREASED [None]
  - MEDICATION ERROR [None]
  - MONOCYTE COUNT INCREASED [None]
  - NEUTROPHIL COUNT INCREASED [None]
  - PARKINSONISM [None]
  - RENAL FAILURE ACUTE [None]
  - RHABDOMYOLYSIS [None]
  - URINARY TRACT INFECTION [None]
  - WHITE BLOOD CELL COUNT INCREASED [None]
